FAERS Safety Report 5485349-6 (Version None)
Quarter: 2007Q4

REPORT INFORMATION
  Report Type: 
  Country: None (occurrence: None)
  Receive Date: 20071015
  Receipt Date: 20071010
  Transmission Date: 20080405
  Serious: Yes (Death, Other)
  Sender: FDA-Public Use
  Company Number: US-BAYER-200712044BCC

PATIENT
  Sex: Male

DRUGS (1)
  1. ALKA SELTZER PLUS EFFERVESCENT NIGHT TIME COLD [Suspect]
     Indication: DRUG USE FOR UNKNOWN INDICATION

REACTIONS (2)
  - DRUG TOXICITY [None]
  - VICTIM OF HOMICIDE [None]
